FAERS Safety Report 8100647-5 (Version None)
Quarter: 2012Q1

REPORT INFORMATION
  Report Type: 
  Country: None (occurrence: None)
  Receive Date: 20120131
  Receipt Date: 20120117
  Transmission Date: 20120608
  Serious: Yes (Other)
  Sender: FDA-Public Use
  Company Number: CA-JNJFOC-20120112593

PATIENT
  Sex: Male

DRUGS (2)
  1. REMICADE [Suspect]
     Route: 042
     Dates: start: 20081006
  2. REMICADE [Suspect]
     Indication: CROHN'S DISEASE
     Route: 042
     Dates: start: 20120103

REACTIONS (6)
  - PYREXIA [None]
  - ALOPECIA [None]
  - ARTHRALGIA [None]
  - MUSCULOSKELETAL STIFFNESS [None]
  - MYALGIA [None]
  - SKIN REACTION [None]
